FAERS Safety Report 6680182-1 (Version None)
Quarter: 2010Q2

REPORT INFORMATION
  Report Type: 
  Country: None (occurrence: None)
  Receive Date: 20100413
  Receipt Date: 20100331
  Transmission Date: 20101027
  Serious: Yes (Death, Other)
  Sender: FDA-Public Use
  Company Number: JP-BRISTOL-MYERS SQUIBB COMPANY-14915219

PATIENT
  Age: 76 Year
  Sex: Male

DRUGS (9)
  1. SPRYCEL [Suspect]
     Indication: ACUTE LYMPHOCYTIC LEUKAEMIA
     Dosage: 50X2MG/D 01OCT-05OCT09 50X1MG/D 18NOV-28NOV 50X1MG/D 10DEC-20DEC09 70X1MG/D 21-22DEC09
     Route: 048
     Dates: start: 20091001
  2. HYDREA [Suspect]
     Indication: ACUTE LYMPHOCYTIC LEUKAEMIA
     Dosage: THERAPY DATES: 1500MG/D 18SEP09-01OCT09 AND FROM 17DEC09-22DEC09
     Route: 048
     Dates: start: 20090918, end: 20091222
  3. MAXIPIME [Suspect]
     Indication: PNEUMONIA
     Dosage: THERAPY DATES: 03OCT09-07OCT09; 21OCT09-27OCT09 AND 20NOV09-29NOV2009
     Route: 042
     Dates: start: 20091003, end: 20091129
  4. TAKEPRON [Concomitant]
     Route: 048
     Dates: end: 20091201
  5. ALLOPURINOL [Concomitant]
     Indication: ACUTE LYMPHOCYTIC LEUKAEMIA
     Route: 048
     Dates: end: 20091006
  6. HOKUNALIN [Concomitant]
     Route: 061
     Dates: end: 20091223
  7. PAZUCROSS [Concomitant]
     Route: 042
     Dates: start: 20091007, end: 20091209
  8. FUNGUARD [Concomitant]
     Route: 042
     Dates: start: 20091005, end: 20091209
  9. FULCALIQ 2 [Concomitant]
     Route: 042
     Dates: start: 20091009, end: 20091223

REACTIONS (10)
  - ALANINE AMINOTRANSFERASE INCREASED [None]
  - ANAEMIA [None]
  - ASPARTATE AMINOTRANSFERASE INCREASED [None]
  - BLOOD ALKALINE PHOSPHATASE INCREASED [None]
  - MALIGNANT NEOPLASM PROGRESSION [None]
  - NEUTROPHIL COUNT DECREASED [None]
  - PLATELET COUNT DECREASED [None]
  - PNEUMONIA [None]
  - STAPHYLOCOCCAL INFECTION [None]
  - WHITE BLOOD CELL COUNT DECREASED [None]
